FAERS Safety Report 21186347 (Version 1)
Quarter: 2022Q3

REPORT INFORMATION
  Report Type: Spontaneous
  Country: CN (occurrence: CN)
  Receive Date: 20220808
  Receipt Date: 20220808
  Transmission Date: 20221027
  Serious: Yes (Hospitalization)
  Sender: FDA-Public Use
  Company Number: CN-ABBOTT-2022A-1351685

PATIENT
  Age: 32 Year
  Sex: Male
  Weight: 73 kg

DRUGS (1)
  1. FENOFIBRATE [Suspect]
     Active Substance: FENOFIBRATE
     Indication: Hyperlipidaemia
     Dosage: UNIT DOSE: 1 CAPSULE, DAILY DOSE: 2 CAPSULES
     Route: 048
     Dates: start: 20220720, end: 20220722

REACTIONS (2)
  - Jaundice [Recovering/Resolving]
  - Hepatitis [Recovering/Resolving]

NARRATIVE: CASE EVENT DATE: 20220721
